FAERS Safety Report 10905936 (Version 3)
Quarter: 2017Q1

REPORT INFORMATION
  Report Type: Spontaneous
  Country: US (occurrence: US)
  Receive Date: 20150311
  Receipt Date: 20170104
  Transmission Date: 20170428
  Serious: No
  Sender: FDA-Public Use
  Company Number: US-GLAXOSMITHKLINE-US2015GSK012934

PATIENT
  Sex: Female

DRUGS (16)
  1. OLUX [Concomitant]
     Active Substance: CLOBETASOL PROPIONATE
  2. MEMANTINE. [Concomitant]
     Active Substance: MEMANTINE
  3. CPAP (CONTINUOUS POSITIVE AIRWAY PRESSURE) [Concomitant]
  4. CYMBALTA [Concomitant]
     Active Substance: DULOXETINE HYDROCHLORIDE
  5. ASPIRIN. [Concomitant]
     Active Substance: ASPIRIN
  6. ZYRTEC [Concomitant]
     Active Substance: CETIRIZINE HYDROCHLORIDE
  7. MUCINEX [Concomitant]
     Active Substance: GUAIFENESIN
  8. INDOMETHACIN. [Concomitant]
     Active Substance: INDOMETHACIN
  9. BENADRYL [Concomitant]
     Active Substance: DIPHENHYDRAMINE HYDROCHLORIDE
  10. LAMICTAL [Suspect]
     Active Substance: LAMOTRIGINE
     Indication: DEPRESSION
     Dosage: 150 MG, BID
     Route: 048
     Dates: start: 201612
  11. SIMVASTATIN. [Concomitant]
     Active Substance: SIMVASTATIN
  12. LAMICTAL [Suspect]
     Active Substance: LAMOTRIGINE
     Indication: NERVOUS SYSTEM DISORDER
     Dosage: 100 MG, U
     Dates: start: 2014
  13. VENTOLIN [Concomitant]
     Active Substance: ALBUTEROL SULFATE
  14. CARVEDILOL. [Concomitant]
     Active Substance: CARVEDILOL
  15. CLONAZEPAM. [Concomitant]
     Active Substance: CLONAZEPAM
  16. BOTOX [Concomitant]
     Active Substance: ONABOTULINUMTOXINA

REACTIONS (12)
  - Sluggishness [Not Recovered/Not Resolved]
  - Confusional state [Not Recovered/Not Resolved]
  - Feeling abnormal [Not Recovered/Not Resolved]
  - Nausea [Not Recovered/Not Resolved]
  - Emotional disorder [Not Recovered/Not Resolved]
  - Anxiety [Not Recovered/Not Resolved]
  - Influenza [Not Recovered/Not Resolved]
  - Withdrawal syndrome [Not Recovered/Not Resolved]
  - Irritability [Not Recovered/Not Resolved]
  - Headache [Not Recovered/Not Resolved]
  - Initial insomnia [Not Recovered/Not Resolved]
  - Dysphonia [Not Recovered/Not Resolved]

NARRATIVE: CASE EVENT DATE: 2015
